FAERS Safety Report 5310209-0 (Version None)
Quarter: 2007Q2

REPORT INFORMATION
  Report Type: 
  Country: None (occurrence: None)
  Receive Date: 20070427
  Receipt Date: 20070419
  Transmission Date: 20071010
  Serious: Yes (Hospitalization, Other)
  Sender: FDA-Public Use
  Company Number: 2007UW07739

PATIENT
  Age: 13222 Day
  Sex: Male
  Weight: 118.2 kg

DRUGS (5)
  1. SEROQUEL [Suspect]
     Indication: ANXIETY
     Route: 048
     Dates: start: 20020906, end: 20030804
  2. SEROQUEL [Suspect]
     Indication: BIPOLAR DISORDER
     Route: 048
     Dates: start: 20020906, end: 20030804
  3. ZYPREXA [Suspect]
     Indication: ANXIETY
     Route: 048
     Dates: start: 20031005, end: 20040213
  4. ABILIFY [Concomitant]
  5. HALDOL [Concomitant]

REACTIONS (14)
  - COAGULOPATHY [None]
  - CONVULSION [None]
  - DIABETES MELLITUS [None]
  - DIABETIC COMA [None]
  - DIABETIC KETOACIDOSIS [None]
  - HAEMORRHAGE INTRACRANIAL [None]
  - HEPATIC ENCEPHALOPATHY [None]
  - HEPATIC FAILURE [None]
  - HEPATITIS C [None]
  - HYPOKALAEMIA [None]
  - JAUNDICE [None]
  - LIVER DISORDER [None]
  - THROMBOCYTOPENIA [None]
  - WEIGHT INCREASED [None]
